FAERS Safety Report 14271291 (Version 2)
Quarter: 2018Q2

REPORT INFORMATION
  Report Type: Spontaneous
  Country: FR (occurrence: FR)
  Receive Date: 20171211
  Receipt Date: 20180608
  Transmission Date: 20180711
  Serious: Yes (Death, Life-Threatening, Hospitalization, Other)
  Sender: FDA-Public Use
  Company Number: FR-MYLANLABS-2017M1077082

PATIENT
  Age: 67 Year
  Sex: Male

DRUGS (9)
  1. MYCOPHENOLATE MOFETIL. [Suspect]
     Active Substance: MYCOPHENOLATE MOFETIL
     Indication: IMMUNOSUPPRESSANT DRUG THERAPY
     Dosage: 500 MG, BID
     Route: 065
  2. BASILIXIMAB [Suspect]
     Active Substance: BASILIXIMAB
     Indication: RENAL TRANSPLANT
     Dosage: UNK
     Route: 065
  3. TACROLIMUS. [Suspect]
     Active Substance: TACROLIMUS
     Indication: TRANSPLANT
  4. BELATACEPT [Suspect]
     Active Substance: BELATACEPT
     Dosage: 5 MG/KG, QMO
     Route: 042
     Dates: start: 20131001, end: 20150617
  5. TACROLIMUS. [Suspect]
     Active Substance: TACROLIMUS
     Indication: IMMUNOSUPPRESSANT DRUG THERAPY
     Dosage: UNK
     Route: 065
  6. BASILIXIMAB [Suspect]
     Active Substance: BASILIXIMAB
     Indication: IMMUNOSUPPRESSANT DRUG THERAPY
  7. BELATACEPT [Suspect]
     Active Substance: BELATACEPT
     Indication: PROPHYLAXIS AGAINST TRANSPLANT REJECTION
     Dosage: 10 MG/KG, ON DAY 1 (DL), D5, WEEK 2 (W2), W4, W8, W12
     Route: 042
  8. MYCOPHENOLATE MOFETIL. [Suspect]
     Active Substance: MYCOPHENOLATE MOFETIL
     Indication: RENAL TRANSPLANT
     Dosage: 6300 MG, UNK
     Route: 065
  9. CORTANCYL [Suspect]
     Active Substance: PREDNISONE
     Indication: RENAL TRANSPLANT
     Dosage: UNK
     Route: 048

REACTIONS (21)
  - Lymphopenia [Fatal]
  - Hemiplegia [Fatal]
  - Visual impairment [Fatal]
  - Learning disorder [Fatal]
  - Affective disorder [Fatal]
  - Disorientation [Fatal]
  - Progressive multifocal leukoencephalopathy [Fatal]
  - Hemiparesis [Fatal]
  - Respiratory failure [Fatal]
  - Muscular weakness [Fatal]
  - Aphasia [Fatal]
  - Cytomegalovirus infection [Fatal]
  - Kidney transplant rejection [Fatal]
  - BK virus infection [Fatal]
  - Coma [Fatal]
  - Confusional state [Fatal]
  - Blindness cortical [Fatal]
  - Polyomavirus-associated nephropathy [Unknown]
  - JC virus infection [Fatal]
  - Hypogammaglobulinaemia [Fatal]
  - Epstein-Barr virus infection [Fatal]

NARRATIVE: CASE EVENT DATE: 201501
